FAERS Safety Report 24910034 (Version 1)
Quarter: 2025Q1

REPORT INFORMATION
  Report Type: Spontaneous
  Country: TW (occurrence: TW)
  Receive Date: 20250131
  Receipt Date: 20250131
  Transmission Date: 20250409
  Serious: Yes (Death, Other)
  Sender: UCB
  Company Number: TW-GSK-TW2025APC007374

PATIENT
  Age: 67 Year
  Sex: Male
  Weight: 41.8 kg

DRUGS (23)
  1. KEPPRA [Suspect]
     Active Substance: LEVETIRACETAM
     Indication: Product used for unknown indication
     Dosage: 500 MILLIGRAM, 2X/DAY (BID)
     Route: 048
     Dates: start: 20250105, end: 20250110
  2. CEFOPERAZONE SODIUM\SULBACTAM SODIUM [Suspect]
     Active Substance: CEFOPERAZONE SODIUM\SULBACTAM SODIUM
     Indication: Product used for unknown indication
     Dosage: 2 GRAM, 2X/DAY (BID)
     Route: 042
     Dates: start: 20250105, end: 20250110
  3. ACECLOFENAC [Suspect]
     Active Substance: ACECLOFENAC
     Indication: Product used for unknown indication
     Dosage: 500 MILLIGRAM, 4X/DAY (QID)
     Route: 048
     Dates: start: 20250108, end: 20250114
  4. EVENING PRIMROSE OIL [Suspect]
     Active Substance: EVENING PRIMROSE OIL
     Indication: Product used for unknown indication
     Dosage: 500 MILLIGRAM, 4X/DAY (QID)
     Route: 048
     Dates: start: 20250108, end: 20250114
  5. ACETAMINOPHEN [Suspect]
     Active Substance: ACETAMINOPHEN
     Indication: Product used for unknown indication
     Dosage: 500 MILLIGRAM, 4X/DAY (QID)
     Route: 048
     Dates: start: 20250108, end: 20250114
  6. FUROSEMIDE [Suspect]
     Active Substance: FUROSEMIDE
     Indication: Product used for unknown indication
     Dosage: 40 MILLIGRAM, ONCE DAILY (QD)
     Dates: start: 20250106, end: 20250109
  7. FAMOTIDINE [Suspect]
     Active Substance: FAMOTIDINE
     Indication: Product used for unknown indication
     Dosage: 20 MILLIGRAM, 2X/DAY (BID)
     Route: 048
     Dates: start: 20250108, end: 20250111
  8. PANTOPRAZOLE SODIUM [Suspect]
     Active Substance: PANTOPRAZOLE SODIUM
     Indication: Product used for unknown indication
     Dosage: 40 MILLIGRAM, ONCE DAILY (QD)
     Dates: start: 20250105, end: 20250107
  9. PANTOPRAZOLE SODIUM [Suspect]
     Active Substance: PANTOPRAZOLE SODIUM
     Dosage: 40 MILLIGRAM, ONCE DAILY (QD)
  10. TAMSULOSIN HYDROCHLORIDE [Suspect]
     Active Substance: TAMSULOSIN HYDROCHLORIDE
     Indication: Product used for unknown indication
     Dosage: 0.2 MILLIGRAM, ONCE DAILY (QD)
     Route: 048
     Dates: start: 20250105, end: 20250110
  11. CORDARONE [Suspect]
     Active Substance: AMIODARONE HYDROCHLORIDE
     Indication: Product used for unknown indication
     Dates: start: 20250107, end: 20250111
  12. SEFORCE [Concomitant]
     Indication: Product used for unknown indication
     Dosage: 400 MILLIGRAM, 2X/DAY (BID)
     Dates: start: 20250110, end: 20250117
  13. CLONAZEPAM [Concomitant]
     Active Substance: CLONAZEPAM
     Indication: Product used for unknown indication
     Dosage: 0.5 MILLIGRAM, ONCE DAILY (QD)
     Dates: start: 20250105, end: 20250110
  14. LANOXIN [Concomitant]
     Active Substance: DIGOXIN
     Indication: Product used for unknown indication
     Dates: start: 20250105, end: 20250105
  15. BISOPROLOL FUMARATE [Concomitant]
     Active Substance: BISOPROLOL FUMARATE
     Indication: Product used for unknown indication
     Dosage: 5 MILLIGRAM, ONCE DAILY (QD)
     Route: 048
     Dates: start: 20250106, end: 20250115
  16. Spersin [Concomitant]
     Indication: Product used for unknown indication
     Dates: start: 20250108, end: 202501
  17. TOPSYM [Concomitant]
     Indication: Product used for unknown indication
     Dosage: 10 GRAM, ONCE DAILY (QD)
     Dates: start: 20250107, end: 20250110
  18. LEVEMIR [Concomitant]
     Active Substance: INSULIN DETEMIR
     Indication: Product used for unknown indication
     Dosage: UNK, ONCE DAILY (QD)
     Dates: start: 20250105, end: 20250114
  19. ACTRAPID [Concomitant]
     Active Substance: INSULIN HUMAN
     Indication: Product used for unknown indication
     Dates: start: 20250105, end: 20250112
  20. LINAGLIPTIN [Concomitant]
     Active Substance: LINAGLIPTIN
     Indication: Product used for unknown indication
     Dosage: 5 MILLIGRAM, ONCE DAILY (QD)
     Dates: start: 20250106, end: 20250113
  21. U CITRA [Concomitant]
     Indication: Product used for unknown indication
     Dates: start: 20250107, end: 20250108
  22. FUMUCIL [Concomitant]
     Indication: Product used for unknown indication
     Dates: start: 20250106, end: 20250111
  23. BESMATE [Concomitant]
     Indication: Product used for unknown indication
     Dosage: UNK, 4X/DAY (QID)
     Dates: start: 20250105, end: 20250105

REACTIONS (12)
  - Multiple organ dysfunction syndrome [Fatal]
  - Toxic epidermal necrolysis [Fatal]
  - Stevens-Johnson syndrome [Unknown]
  - Hypoxia [Unknown]
  - Atrial fibrillation [Unknown]
  - Pneumonia [Unknown]
  - Drug reaction with eosinophilia and systemic symptoms [Unknown]
  - Skin warm [Unknown]
  - Skin exfoliation [Unknown]
  - Lung infiltration [Unknown]
  - Pyrexia [Unknown]
  - Rash erythematous [Unknown]

NARRATIVE: CASE EVENT DATE: 20250110
